FAERS Safety Report 7584781-4 (Version None)
Quarter: 2011Q2

REPORT INFORMATION
  Report Type: 
  Country: None (occurrence: None)
  Receive Date: 20110630
  Receipt Date: 20110619
  Transmission Date: 20111010
  Serious: Yes (Hospitalization, Disabling, Other)
  Sender: FDA-Public Use
  Company Number: PHHY2011BD53800

PATIENT
  Age: 67 Year
  Sex: Female

DRUGS (3)
  1. ZOLEDRONIC ACID [Suspect]
     Dosage: ONCE YEARLY
     Route: 042
     Dates: start: 20090824
  2. ZOLEDRONIC ACID [Suspect]
     Dosage: ONCE YEARLY
     Route: 042
     Dates: start: 20101113
  3. ZOLEDRONIC ACID [Suspect]
     Indication: OSTEOPOROSIS POSTMENOPAUSAL
     Dosage: ONCE YEARLY
     Route: 042
     Dates: start: 20081103

REACTIONS (3)
  - DRUG INEFFECTIVE [None]
  - ABASIA [None]
  - BURNING SENSATION [None]
